FAERS Safety Report 5527624-2 (Version None)
Quarter: 2007Q4

REPORT INFORMATION
  Report Type: 
  Country: None (occurrence: None)
  Receive Date: 20071128
  Receipt Date: 20071122
  Transmission Date: 20080405
  Serious: Yes (Hospitalization)
  Sender: FDA-Public Use
  Company Number: JP-SP-2007-03975

PATIENT
  Age: 77 Year
  Sex: Male

DRUGS (2)
  1. IMMUCYST [Suspect]
     Indication: BLADDER CANCER
     Route: 043
     Dates: start: 20070608, end: 20070727
  2. LEVOFLOXACIN [Concomitant]
     Dates: start: 20070608, end: 20070731

REACTIONS (1)
  - POLLAKIURIA [None]
